FAERS Safety Report 14407470 (Version 6)
Quarter: 2019Q2

REPORT INFORMATION
  Report Type: Report from Study
  Country: CA (occurrence: CA)
  Receive Date: 20180118
  Receipt Date: 20190528
  Transmission Date: 20190711
  Serious: Yes (Other)
  Sender: FDA-Public Use
  Company Number: CA-ROCHE-1601537

PATIENT
  Age: 73 Year
  Sex: Female
  Weight: 64 kg

DRUGS (9)
  1. ESBRIET [Suspect]
     Active Substance: PIRFENIDONE
     Route: 048
  2. ESBRIET [Suspect]
     Active Substance: PIRFENIDONE
     Route: 048
     Dates: start: 20150510
  3. ESBRIET [Suspect]
     Active Substance: PIRFENIDONE
     Route: 048
     Dates: start: 20150517
  4. ESBRIET [Suspect]
     Active Substance: PIRFENIDONE
     Indication: IDIOPATHIC PULMONARY FIBROSIS
     Route: 048
     Dates: start: 20150503
  5. PREMARIN [Concomitant]
     Active Substance: ESTROGENS, CONJUGATED
  6. ALENDRONATE [Concomitant]
     Active Substance: ALENDRONATE SODIUM
  7. ESBRIET [Suspect]
     Active Substance: PIRFENIDONE
     Route: 048
     Dates: start: 20161207
  8. PREGABALIN. [Concomitant]
     Active Substance: PREGABALIN
  9. CLONIDINE. [Concomitant]
     Active Substance: CLONIDINE

REACTIONS (14)
  - Varicose vein [Not Recovered/Not Resolved]
  - Product dose omission [Unknown]
  - Taste disorder [Not Recovered/Not Resolved]
  - Carbon monoxide diffusing capacity decreased [Unknown]
  - Salivary hypersecretion [Unknown]
  - Neuralgia [Not Recovered/Not Resolved]
  - Dry eye [Recovered/Resolved]
  - Decreased appetite [Unknown]
  - Eye pain [Recovered/Resolved]
  - Pneumonia [Recovering/Resolving]
  - Rash [Unknown]
  - Extra dose administered [Unknown]
  - Blood pressure increased [Unknown]
  - Pulmonary function test decreased [Recovering/Resolving]

NARRATIVE: CASE EVENT DATE: 20150503
